FAERS Safety Report 5494993-1 (Version None)
Quarter: 2007Q4

REPORT INFORMATION
  Report Type: 
  Country: None (occurrence: None)
  Receive Date: 20071022
  Receipt Date: 20071015
  Transmission Date: 20080405
  Serious: Yes (Life-Threatening)
  Sender: FDA-Public Use
  Company Number: 2007-165935-NL

PATIENT
  Age: 30 Year
  Sex: Male

DRUGS (1)
  1. VECURONIUM BROMIDE [Suspect]
     Dates: start: 20040401

REACTIONS (4)
  - BRADYCARDIA [None]
  - CEREBRAL DISORDER [None]
  - HYPOXIA [None]
  - SHOCK [None]
